FAERS Safety Report 6989336-8 (Version None)
Quarter: 2010Q3

REPORT INFORMATION
  Report Type: 
  Country: None (occurrence: None)
  Receive Date: 20100916
  Receipt Date: 20100913
  Transmission Date: 20110219
  Serious: Yes (Death, Other)
  Sender: FDA-Public Use
  Company Number: US-GILEAD-2009-0023805

PATIENT
  Sex: Female
  Weight: 75 kg

DRUGS (4)
  1. LETAIRIS [Suspect]
     Indication: PULMONARY ARTERIAL HYPERTENSION
     Route: 048
     Dates: start: 20080409, end: 20090729
  2. FLOLAN [Concomitant]
     Indication: PULMONARY ARTERIAL HYPERTENSION
     Dates: start: 20080101
  3. COUMADIN [Concomitant]
     Indication: PULMONARY ARTERIAL HYPERTENSION
     Dates: start: 20080101, end: 20090801
  4. LORTAB [Concomitant]

REACTIONS (2)
  - PREGNANCY [None]
  - PULMONARY ARTERIAL HYPERTENSION [None]
